FAERS Safety Report 10448220 (Version 13)
Quarter: 2016Q4

REPORT INFORMATION
  Report Type: Report from Study
  Country: FR (occurrence: FR)
  Receive Date: 20140911
  Receipt Date: 20161110
  Transmission Date: 20170206
  Serious: Yes (Hospitalization, Other)
  Sender: FDA-Public Use
  Company Number: FR-ROCHE-1447752

PATIENT
  Age: 70 Year
  Sex: Male
  Weight: 65 kg

DRUGS (13)
  1. RANIBIZUMAB [Suspect]
     Active Substance: RANIBIZUMAB
     Indication: RETINAL VEIN OCCLUSION
     Dosage: IN THE RIGHT EYE
     Route: 031
     Dates: start: 20140128
  2. DAFALGAN CODEINE [Concomitant]
     Active Substance: ACETAMINOPHEN\CODEINE PHOSPHATE
     Route: 065
  3. ASPEGIC [Concomitant]
     Active Substance: ASPIRIN DL-LYSINE
     Route: 048
  4. OXYCONTIN [Concomitant]
     Active Substance: OXYCODONE HYDROCHLORIDE
     Route: 048
  5. OZURDEX [Concomitant]
     Active Substance: DEXAMETHASONE
  6. RANIBIZUMAB [Suspect]
     Active Substance: RANIBIZUMAB
     Dosage: IN THE RIGHT EYE
     Route: 031
     Dates: start: 20140409, end: 20140409
  7. SILICON [Suspect]
     Active Substance: SILICON
     Indication: PRODUCT USED FOR UNKNOWN INDICATION
     Dosage: REPORTED AS MEPILAX
     Route: 065
  8. LOVENOX [Concomitant]
     Active Substance: ENOXAPARIN SODIUM
     Route: 065
     Dates: start: 20150706, end: 20150710
  9. OXYCONTIN [Concomitant]
     Active Substance: OXYCODONE HYDROCHLORIDE
     Route: 048
  10. PARACETAMOL [Concomitant]
     Active Substance: ACETAMINOPHEN
  11. RANIBIZUMAB [Suspect]
     Active Substance: RANIBIZUMAB
     Indication: VISUAL IMPAIRMENT
     Dosage: IN THE RIGHT EYE
     Route: 031
     Dates: start: 20140226, end: 20140226
  12. COVERSYL [Concomitant]
     Active Substance: PERINDOPRIL
     Indication: HYPERTENSION
     Route: 048
     Dates: start: 201401
  13. LYRICA [Concomitant]
     Active Substance: PREGABALIN

REACTIONS (6)
  - Impaired healing [Recovering/Resolving]
  - Skin ulcer [Recovered/Resolved]
  - Dermatitis contact [Unknown]
  - Retinal vein occlusion [Unknown]
  - Macular ischaemia [Not Recovered/Not Resolved]
  - Retinal ischaemia [Not Recovered/Not Resolved]

NARRATIVE: CASE EVENT DATE: 20140502
